FAERS Safety Report 8903698 (Version 1)
Quarter: 2012Q4

REPORT INFORMATION
  Report Type: 
  Country: US (occurrence: US)
  Receive Date: 20121113
  Receipt Date: 20121113
  Transmission Date: 20130627
  Serious: No
  Sender: FDA-Public Use
  Company Number: US-AMGEN-USASP2012010180

PATIENT
  Sex: Female

DRUGS (2)
  1. ENBREL [Suspect]
     Indication: RHEUMATOID ARTHRITIS
     Dosage: 50 mg, qwk
     Dates: start: 20111212
  2. TREXALL [Concomitant]
     Dosage: UNK

REACTIONS (5)
  - Pain [Unknown]
  - Abdominal pain [Unknown]
  - Vomiting [Unknown]
  - Injection site erythema [Unknown]
  - Injection site pain [Unknown]
